FAERS Safety Report 9729336 (Version 1)
Quarter: 2013Q4

REPORT INFORMATION
  Report Type: Spontaneous
  Country: GB (occurrence: GB)
  Receive Date: 20131204
  Receipt Date: 20131204
  Transmission Date: 20140711
  Serious: Yes (Disabling)
  Sender: FDA-Public Use
  Company Number: GB-ACTAVIS-2013-22240

PATIENT
  Sex: Female
  Weight: 76 kg

DRUGS (5)
  1. HYDROCORTISONE (UNKNOWN) [Suspect]
     Indication: DERMATITIS ATOPIC
     Dosage: UNK
     Route: 061
     Dates: start: 19930307
  2. ELOCON [Suspect]
     Indication: DERMATITIS ATOPIC
     Dosage: UNK
     Route: 061
  3. EUMOVATE [Suspect]
     Indication: DERMATITIS ATOPIC
     Dosage: UNK
     Route: 061
  4. HYDROXYZINE [Concomitant]
     Indication: PRODUCT USED FOR UNKNOWN INDICATION
     Dosage: UNK
     Route: 065
  5. SERTRALINE HYDROCHLORIDE [Concomitant]
     Indication: PRODUCT USED FOR UNKNOWN INDICATION
     Dosage: UNK
     Route: 065

REACTIONS (2)
  - Eczema [Not Recovered/Not Resolved]
  - Drug dependence [Not Recovered/Not Resolved]
